FAERS Safety Report 8512218-7 (Version None)
Quarter: 2012Q3

REPORT INFORMATION
  Report Type: 
  Country: None (occurrence: None)
  Receive Date: 20120716
  Receipt Date: 20120701
  Transmission Date: 20120928
  Serious: Yes (Death, Other)
  Sender: FDA-Public Use
  Company Number: FR-ROCHE-631426

PATIENT

DRUGS (5)
  1. DOXORUBICIN HCL [Suspect]
     Indication: MANTLE CELL LYMPHOMA
     Dosage: CONTINUOUS INFUSION FOR 4 DAYS. FORM: INFUSION.
     Route: 065
  2. CHLORAMBUCIL [Suspect]
     Indication: MANTLE CELL LYMPHOMA
     Dosage: D20 TO D29. ONE CYCLE EVERY 35 DAYS.
     Route: 065
  3. BORTEZOMIB [Suspect]
     Indication: MANTLE CELL LYMPHOMA
     Dosage: DRUG: PS 341 ON D1, 4, 8 AND 11 OF CYCLE 1.
     Route: 065
  4. DEXAMETHASONE [Suspect]
     Indication: MANTLE CELL LYMPHOMA
     Dosage: FROM DAY 1 TO 4.
     Route: 065
  5. MABTHERA [Suspect]
     Indication: MANTLE CELL LYMPHOMA
     Dosage: DAY 1 (AND DAY 8 FOR CYCLE 1).
     Route: 065

REACTIONS (11)
  - THROMBOCYTOPENIA [None]
  - ANAEMIA [None]
  - GASTROINTESTINAL TOXICITY [None]
  - PULMONARY TOXICITY [None]
  - NEPHROPATHY TOXIC [None]
  - CARDIOTOXICITY [None]
  - SEPSIS [None]
  - NEUROTOXICITY [None]
  - HEPATOTOXICITY [None]
  - NEUTROPENIA [None]
  - NEUROPATHY PERIPHERAL [None]
